FAERS Safety Report 8518594 (Version 3)
Quarter: 2013Q2

REPORT INFORMATION
  Report Type: Spontaneous
  Country: US (occurrence: US)
  Receive Date: 20120417
  Receipt Date: 20130515
  Transmission Date: 20140414
  Serious: No
  Sender: FDA-Public Use
  Company Number: US-ASTRAZENECA-2011SE69421

PATIENT
  Age: 58 Year
  Sex: Female

DRUGS (8)
  1. ALLERGY MEDICATION [Concomitant]
  2. PREDNISONE [Concomitant]
  3. ALBUTEROL INHALER [Concomitant]
  4. PAIN MEDICATION [Concomitant]
  5. NEXIUM [Suspect]
     Indication: GASTROOESOPHAGEAL REFLUX DISEASE
     Dosage: EVERY MORNING
     Route: 048
  6. ADVAIR [Concomitant]
  7. FLONASE [Concomitant]
  8. MUSCLE RELAXERS [Concomitant]

REACTIONS (13)
  - Dyspepsia [Unknown]
  - Asthenia [Unknown]
  - Arthritis [Unknown]
  - Scoliosis [Unknown]
  - Arthropathy [Unknown]
  - Sinusitis [Unknown]
  - Vitamin D abnormal [Unknown]
  - Bursitis [Unknown]
  - Abdominal distension [Unknown]
  - Insomnia [Unknown]
  - Malaise [Unknown]
  - Vomiting [Unknown]
  - Intentional drug misuse [Unknown]
